FAERS Safety Report 5124883-5 (Version None)
Quarter: 2006Q4

REPORT INFORMATION
  Report Type: 
  Country: None (occurrence: None)
  Receive Date: 20061011
  Receipt Date: 20060928
  Transmission Date: 20070319
  Serious: Yes (Hospitalization)
  Sender: FDA-Public Use
  Company Number: JP-AMGEN-US195348

PATIENT
  Sex: Male

DRUGS (10)
  1. CINACALCET [Suspect]
     Indication: HYPERPARATHYROIDISM SECONDARY
     Route: 048
     Dates: start: 20040524, end: 20060810
  2. ETIZOLAM [Concomitant]
  3. SEVELAMER HCL [Concomitant]
  4. ASCORBIC ACID/CALCIUM PANTOHENATE [Concomitant]
  5. ASPIRIN [Concomitant]
  6. ACETYLCYSTEINE [Concomitant]
  7. EPOETIN BETA [Concomitant]
     Dates: start: 20060719
  8. MAXACALCITOL [Concomitant]
  9. FERROUS HYDROXIDE MACROAGGREGATES/KIT/INJ [Concomitant]
     Dates: start: 20060710
  10. GLUCOSE [Concomitant]
     Dates: start: 20060710

REACTIONS (2)
  - DEAFNESS UNILATERAL [None]
  - TINNITUS [None]
